FAERS Safety Report 9082581 (Version 1)
Quarter: 2013Q1

REPORT INFORMATION
  Report Type: Report from Study
  Country: US (occurrence: US)
  Receive Date: 20130130
  Receipt Date: 20130130
  Transmission Date: 20140127
  Serious: No
  Sender: FDA-Public Use
  Company Number: US-ABBOTT-12P-163-0962544-00

PATIENT
  Age: 31 Year
  Sex: Female

DRUGS (8)
  1. HUMIRA 40 MG/0.8 ML PEN [Suspect]
     Indication: CROHN^S DISEASE
     Dates: start: 2008
  2. COLAZAL [Concomitant]
     Indication: CROHN^S DISEASE
     Dosage: 3 TABS THREE TIMES A DAY
  3. COLAZAL [Concomitant]
     Indication: PROPHYLAXIS
  4. COLAZAL [Concomitant]
     Indication: NEOPLASM MALIGNANT
  5. FLONASE [Concomitant]
     Indication: SEASONAL ALLERGY
     Dosage: DAILY
  6. ZYRTEC [Concomitant]
     Indication: SEASONAL ALLERGY
     Dosage: DAILY
  7. CALCIUM [Concomitant]
     Indication: MINERAL SUPPLEMENTATION
  8. OTC MULTIVITAMIN [Concomitant]
     Indication: VITAMIN SUPPLEMENTATION

REACTIONS (4)
  - Device malfunction [Unknown]
  - Injection site pain [Recovered/Resolved]
  - Incorrect dose administered [Unknown]
  - Injection site pain [Unknown]
